FAERS Safety Report 16767811 (Version 2)
Quarter: 2019Q4

REPORT INFORMATION
  Report Type: Spontaneous
  Country: US (occurrence: US)
  Receive Date: 20190903
  Receipt Date: 20191011
  Transmission Date: 20200122
  Serious: No
  Sender: FDA-Public Use
  Company Number: US-LEXICON PHARMACEUTICALS, INC-19-1606-00833

PATIENT
  Sex: Female

DRUGS (29)
  1. MULTIVITAMIN [Concomitant]
     Active Substance: VITAMINS
  2. ASCORBIC ACID. [Concomitant]
     Active Substance: ASCORBIC ACID
  3. LORAZEPAM. [Concomitant]
     Active Substance: LORAZEPAM
  4. DIOVAN [Concomitant]
     Active Substance: VALSARTAN
  5. FEXOFENADINE [Concomitant]
     Active Substance: FEXOFENADINE HYDROCHLORIDE
  6. OCTREOTIDE. [Concomitant]
     Active Substance: OCTREOTIDE
  7. LOMOTIL [Concomitant]
     Active Substance: ATROPINE SULFATE\DIPHENOXYLATE HYDROCHLORIDE
  8. XARELTO [Concomitant]
     Active Substance: RIVAROXABAN
  9. TELOTRISTAT ETHYL [Suspect]
     Active Substance: TELOTRISTAT ETHYL
     Indication: CARCINOID SYNDROME
     Route: 048
     Dates: start: 20170504
  10. DICYCLOMINE [Concomitant]
     Active Substance: DICYCLOMINE HYDROCHLORIDE
  11. GABAPENTIN. [Concomitant]
     Active Substance: GABAPENTIN
  12. MAGNESIUM OXIDE. [Concomitant]
     Active Substance: MAGNESIUM OXIDE
  13. MULTIVITAMIN [Concomitant]
     Active Substance: VITAMINS
  14. CREON [Concomitant]
     Active Substance: PANCRELIPASE AMYLASE\PANCRELIPASE LIPASE\PANCRELIPASE PROTEASE
  15. VITAMIN B COMPLEX [Concomitant]
     Active Substance: CYANOCOBALAMIN\DEXPANTHENOL\NIACINAMIDE\PYRIDOXINE HYDROCHLORIDE\RIBOFLAVIN 5^-PHOSPHATE SODIUM\THIAMINE HYDROCHLORIDE\VITAMIN B COMPLEX
  16. WELLBUTRIN XL [Concomitant]
     Active Substance: BUPROPION HYDROCHLORIDE
  17. FUROSEMIDE. [Concomitant]
     Active Substance: FUROSEMIDE
  18. NITROGLYCERIN. [Concomitant]
     Active Substance: NITROGLYCERIN
  19. OXYCODONE [Concomitant]
     Active Substance: OXYCODONE
  20. PREDNISONE. [Concomitant]
     Active Substance: PREDNISONE
  21. ALBUTEROL. [Concomitant]
     Active Substance: ALBUTEROL
  22. CALCIUM CARBONATE. [Concomitant]
     Active Substance: CALCIUM CARBONATE
  23. LOPRESSOR [Concomitant]
     Active Substance: METOPROLOL TARTRATE
  24. POLYETHYLENE GLYCOL [Concomitant]
     Active Substance: POLYETHYLENE GLYCOLS
  25. POTASSIUM CHLORIDE. [Concomitant]
     Active Substance: POTASSIUM CHLORIDE
  26. TYLENOL [Concomitant]
     Active Substance: ACETAMINOPHEN
  27. AMLODIPINE [Concomitant]
     Active Substance: AMLODIPINE BESYLATE
  28. SINGULAIR [Concomitant]
     Active Substance: MONTELUKAST SODIUM
  29. LEVOTHYROXINE. [Concomitant]
     Active Substance: LEVOTHYROXINE

REACTIONS (2)
  - Joint injury [Unknown]
  - Malaise [Unknown]
